FAERS Safety Report 5819438-0 (Version None)
Quarter: 2008Q3

REPORT INFORMATION
  Report Type: 
  Country: None (occurrence: None)
  Receive Date: 20080723
  Receipt Date: 20080721
  Transmission Date: 20090109
  Serious: Yes (Hospitalization)
  Sender: FDA-Public Use
  Company Number: HU-BRISTOL-MYERS SQUIBB COMPANY-14202055

PATIENT
  Age: 27 Year
  Sex: Female

DRUGS (6)
  1. ABILIFY [Suspect]
     Indication: SCHIZOPHRENIA
     Dosage: 2X15MG/D FOR 3DAYS17-19APR08;15MG/DAY FOR 7DAYS 20-30APR08.
     Route: 048
     Dates: start: 20080417, end: 20080430
  2. ABILIFY [Suspect]
     Indication: MILD MENTAL RETARDATION
     Dosage: 2X15MG/D FOR 3DAYS17-19APR08;15MG/DAY FOR 7DAYS 20-30APR08.
     Route: 048
     Dates: start: 20080417, end: 20080430
  3. ABILIFY [Suspect]
     Indication: ABNORMAL BEHAVIOUR
     Dosage: 2X15MG/D FOR 3DAYS17-19APR08;15MG/DAY FOR 7DAYS 20-30APR08.
     Route: 048
     Dates: start: 20080417, end: 20080430
  4. ABILIFY [Suspect]
     Indication: SUICIDE ATTEMPT
     Dosage: 2X15MG/D FOR 3DAYS17-19APR08;15MG/DAY FOR 7DAYS 20-30APR08.
     Route: 048
     Dates: start: 20080417, end: 20080430
  5. SEROQUEL [Suspect]
  6. AKINETON [Concomitant]
     Dates: start: 20080420, end: 20080430

REACTIONS (2)
  - ACUTE PSYCHOSIS [None]
  - NEUROLEPTIC MALIGNANT SYNDROME [None]
